FAERS Safety Report 9609420 (Version 1)
Quarter: 2013Q4

REPORT INFORMATION
  Report Type: Spontaneous
  Country: US (occurrence: US)
  Receive Date: 20131009
  Receipt Date: 20131009
  Transmission Date: 20140711
  Serious: No
  Sender: FDA-Public Use
  Company Number: US-PURDUE-USA-2012-0094992

PATIENT
  Sex: Male

DRUGS (2)
  1. BUTRANS [Suspect]
     Indication: ARTHRITIS
     Dosage: 20 MCG, 1/WEEK
     Route: 062
  2. BUTRANS [Suspect]
     Dosage: 10 MCG, 1/WEEK
     Route: 062
     Dates: end: 20121023

REACTIONS (3)
  - Nausea [Not Recovered/Not Resolved]
  - Fatigue [Not Recovered/Not Resolved]
  - Dizziness [Not Recovered/Not Resolved]
